FAERS Safety Report 23284568 (Version 1)
Quarter: 2023Q4

REPORT INFORMATION
  Report Type: Spontaneous
  Country: BR (occurrence: BR)
  Receive Date: 20231211
  Receipt Date: 20231211
  Transmission Date: 20240110
  Serious: Yes (Life-Threatening, Hospitalization)
  Sender: FDA-Public Use
  Company Number: BR-PFIZER INC-PV202300198342

PATIENT
  Age: 60 Year
  Sex: Male
  Weight: 105 kg

DRUGS (1)
  1. MEROPENEM [Suspect]
     Active Substance: MEROPENEM
     Dosage: 1 G, 3X/DAY, EVERY 8 HOURS
     Route: 042
     Dates: start: 20230813, end: 20230813

REACTIONS (4)
  - Hypersensitivity [Unknown]
  - Hyperaemia [Recovered/Resolved]
  - Dermatitis [Unknown]
  - Rash [Unknown]
